FAERS Safety Report 9120674 (Version 1)
Quarter: 2013Q1

REPORT INFORMATION
  Report Type: Spontaneous
  Country: US (occurrence: US)
  Receive Date: 20130226
  Receipt Date: 20130226
  Transmission Date: 20140127
  Serious: No
  Sender: FDA-Public Use
  Company Number: US-PFIZER INC-2013068921

PATIENT
  Sex: Female

DRUGS (3)
  1. LYRICA [Suspect]
     Indication: PAIN
     Dosage: UNK
     Route: 048
     Dates: start: 201111
  2. LYRICA [Suspect]
     Dosage: UNK
     Route: 048
  3. LYRICA [Suspect]
     Dosage: 100 MG(2 CAPSULES OF LYRICA 50MG), AT A TIME
     Route: 048

REACTIONS (4)
  - Intentional drug misuse [Unknown]
  - Somnolence [Unknown]
  - Feeling abnormal [Unknown]
  - Off label use [Unknown]
